FAERS Safety Report 5033630-7 (Version None)
Quarter: 2006Q2

REPORT INFORMATION
  Report Type: 
  Country: None (occurrence: None)
  Receive Date: 20060518
  Receipt Date: 20050805
  Transmission Date: 20061013
  Serious: Yes (Other)
  Sender: FDA-Public Use
  Company Number: 2005067807

PATIENT
  Age: 31 Year
  Sex: Female
  Weight: 56.6996 kg

DRUGS (5)
  1. DEPO-PROVERA [Suspect]
     Indication: CONTRACEPTION
     Dosage: SEE IMAGE
     Route: 030
     Dates: start: 19990101, end: 19990101
  2. DEPO-PROVERA [Suspect]
     Indication: CONTRACEPTION
     Dosage: SEE IMAGE
     Route: 030
     Dates: start: 20050210, end: 20050210
  3. LUVOX [Concomitant]
  4. BUSPAR [Concomitant]
  5. SINGULAIR ^DIECKMANN^ (MONTELUKAST SODIUM) [Concomitant]

REACTIONS (6)
  - ABDOMINAL PAIN [None]
  - AMENORRHOEA [None]
  - APPETITE DISORDER [None]
  - FATIGUE [None]
  - IRRITABILITY [None]
  - OSTEOPOROSIS [None]
